FAERS Safety Report 8295155-5 (Version None)
Quarter: 2012Q2

REPORT INFORMATION
  Report Type: 
  Country: None (occurrence: None)
  Receive Date: 20120418
  Receipt Date: 20120416
  Transmission Date: 20120825
  Serious: Yes (Hospitalization)
  Sender: FDA-Public Use
  Company Number: IT-PFIZER INC-2012084736

PATIENT
  Age: 54 Year
  Sex: Male

DRUGS (10)
  1. PREDNISONE TAB [Concomitant]
     Dosage: 25 MG, UNK
     Route: 048
     Dates: start: 20120106, end: 20120116
  2. SPORANOX [Concomitant]
     Dosage: 40 ML, UNK
     Route: 048
  3. LEVOFLOXACIN [Concomitant]
     Dosage: 500 MG, UNK
     Route: 048
     Dates: start: 20120111, end: 20120118
  4. MYELOSTIM [Suspect]
     Indication: NEUTROPENIA
     Dosage: 1 ML, 1X/DAY
     Route: 058
     Dates: start: 20120110, end: 20120115
  5. DOXORUBICIN HCL [Suspect]
     Indication: FOLLICLE CENTRE LYMPHOMA, FOLLICULAR GRADE I, II, III STAGE IV
     Dosage: 95 MG, CYCLIC
     Route: 042
     Dates: start: 20111215, end: 20120105
  6. CYCLOPHOSPHAMIDE [Suspect]
     Indication: FOLLICLE CENTRE LYMPHOMA, FOLLICULAR GRADE I, II, III STAGE IV
     Dosage: 1425 MG, CYCLIC
     Route: 042
     Dates: start: 20111215, end: 20120105
  7. MABTHERA [Suspect]
     Indication: FOLLICLE CENTRE LYMPHOMA, FOLLICULAR GRADE I, II, III STAGE IV
     Dosage: 700 MG, CYCLIC
     Route: 042
     Dates: start: 20111222, end: 20120104
  8. LAMIVUDINE [Concomitant]
     Dosage: 100 MG, UNK
     Route: 048
     Dates: start: 20111215, end: 20120125
  9. VINCRISTINE [Suspect]
     Indication: FOLLICLE CENTRE LYMPHOMA, FOLLICULAR GRADE I, II, III STAGE IV
     Dosage: 2 MG, CYCLIC
     Route: 040
     Dates: start: 20111215, end: 20120105
  10. BACTRIM [Concomitant]
     Dosage: 1920 MG, CYCLIC
     Route: 048
     Dates: start: 20111215, end: 20120125

REACTIONS (4)
  - ORAL DISCOMFORT [None]
  - BONE PAIN [None]
  - DIARRHOEA [None]
  - ABDOMINAL DISTENSION [None]
